FAERS Safety Report 7029144-5 (Version None)
Quarter: 2010Q4

REPORT INFORMATION
  Report Type: 
  Country: None (occurrence: None)
  Receive Date: 20101005
  Receipt Date: 20100830
  Transmission Date: 20110411
  Serious: No
  Sender: FDA-Public Use
  Company Number: US-PFIZER INC-2010109716

PATIENT
  Sex: Male

DRUGS (1)
  1. ARTHROTEC [Suspect]
     Indication: ARTHRITIS
     Dosage: 75 MG, 2X/DAY
     Route: 048
     Dates: start: 20060113

REACTIONS (4)
  - ABDOMINAL PAIN UPPER [None]
  - DRUG DISPENSING ERROR [None]
  - HEADACHE [None]
  - PRODUCT CONTAMINATION [None]
